FAERS Safety Report 9144553 (Version 1)
Quarter: 2013Q1

REPORT INFORMATION
  Report Type: Spontaneous
  Country: FR (occurrence: FR)
  Receive Date: 20130306
  Receipt Date: 20130306
  Transmission Date: 20140127
  Serious: Yes (Hospitalization)
  Sender: FDA-Public Use
  Company Number: FR-ROCHE-1198662

PATIENT
  Age: 75 Year
  Sex: Female

DRUGS (7)
  1. LUCENTIS [Suspect]
     Indication: AGE-RELATED MACULAR DEGENERATION
     Dosage: UNIT DOSE: 0.5 CC
     Route: 050
     Dates: start: 20070301
  2. LUCENTIS [Suspect]
     Dosage: UNIT DOSE: 0.5 CC
     Route: 050
     Dates: start: 20070404
  3. LUCENTIS [Suspect]
     Dosage: UNIT DOSE: 0.5 CC
     Route: 050
     Dates: start: 20070514
  4. PREVISCAN [Concomitant]
     Route: 065
  5. TENORMINE [Concomitant]
     Route: 065
  6. LOPRIL [Concomitant]
     Route: 065
  7. ESIDREX [Concomitant]
     Route: 065

REACTIONS (1)
  - Temporal arteritis [Not Recovered/Not Resolved]
